FAERS Safety Report 10874607 (Version 1)
Quarter: 2015Q1

REPORT INFORMATION
  Report Type: Spontaneous
  Country: US (occurrence: US)
  Receive Date: 20150227
  Receipt Date: 20150227
  Transmission Date: 20150721
  Serious: Yes (Other)
  Sender: FDA-Public Use
  Company Number: US-MYLANLABS-2015M1006245

PATIENT

DRUGS (3)
  1. DILTIAZEM [Concomitant]
     Active Substance: DILTIAZEM
     Dosage: 10 MG, ON A DRIP AT 5 MG/MIN
     Route: 040
  2. ADENOSINE. [Suspect]
     Active Substance: ADENOSINE
     Indication: OFF LABEL USE
  3. ADENOSINE. [Suspect]
     Active Substance: ADENOSINE
     Indication: PALPITATIONS
     Dosage: 6, 12 AND 12 MG
     Route: 040

REACTIONS (1)
  - Supraventricular tachycardia [Unknown]
